FAERS Safety Report 5498422-3 (Version None)
Quarter: 2007Q4

REPORT INFORMATION
  Report Type: 
  Country: None (occurrence: None)
  Receive Date: 20071024
  Receipt Date: 20070803
  Transmission Date: 20080405
  Serious: Yes (Other)
  Sender: FDA-Public Use
  Company Number: DSA_30339_2007

PATIENT
  Age: 85 Year
  Sex: Female

DRUGS (5)
  1. ATIVAN [Suspect]
     Indication: ANXIETY
     Dosage: (1 MG BID ORAL)
     Route: 048
     Dates: start: 20070201
  2. ATIVAN [Suspect]
     Indication: INSOMNIA
     Dosage: (1 MG BID ORAL)
     Route: 048
     Dates: start: 20070201
  3. COUMADIN [Concomitant]
  4. AMIODARONE [Concomitant]
  5. ZOLOFT [Concomitant]

REACTIONS (5)
  - DEPRESSION [None]
  - INSOMNIA [None]
  - MENTAL DISORDER [None]
  - PANIC ATTACK [None]
  - WITHDRAWAL SYNDROME [None]
